FAERS Safety Report 5342731-5 (Version None)
Quarter: 2007Q2

REPORT INFORMATION
  Report Type: 
  Country: None (occurrence: None)
  Receive Date: 20070601
  Receipt Date: 20070521
  Transmission Date: 20071010
  Serious: Yes (Other)
  Sender: FDA-Public Use
  Company Number: FR-PFIZER INC-2007041741

PATIENT
  Sex: Female

DRUGS (1)
  1. CHAMPIX [Suspect]
     Dates: start: 20070201, end: 20070501

REACTIONS (5)
  - ALCOHOL USE [None]
  - ANXIETY [None]
  - HEADACHE [None]
  - ILL-DEFINED DISORDER [None]
  - SUICIDE ATTEMPT [None]
